FAERS Safety Report 14243127 (Version 1)
Quarter: 2017Q4

REPORT INFORMATION
  Report Type: Other
  Country: IT (occurrence: IT)
  Receive Date: 20171201
  Receipt Date: 20171201
  Transmission Date: 20180321
  Serious: Yes (Other)
  Sender: FDA-Public Use
  Company Number: IT-APOTEX-2017AP021824

PATIENT
  Age: 35 Year
  Sex: Female

DRUGS (1)
  1. CLARITROMICINA DOC GENERICI [Suspect]
     Active Substance: CLARITHROMYCIN
     Indication: PHARYNGOTONSILLITIS
     Dosage: 2 DF, DAILY
     Route: 048
     Dates: start: 20171023, end: 20171025

REACTIONS (2)
  - Erythema [Recovering/Resolving]
  - Swelling face [Recovering/Resolving]

NARRATIVE: CASE EVENT DATE: 20171025
